FAERS Safety Report 12490834 (Version 2)
Quarter: 2016Q2

REPORT INFORMATION
  Report Type: Spontaneous
  Country: GB (occurrence: GB)
  Receive Date: 20160623
  Receipt Date: 20160624
  Transmission Date: 20160815
  Serious: Yes (Other)
  Sender: FDA-Public Use
  Company Number: GB-ASTRAZENECA-2016SE67053

PATIENT
  Age: 49 Year
  Sex: Male
  Weight: 83 kg

DRUGS (11)
  1. LANSOPRAZOLE. [Concomitant]
     Active Substance: LANSOPRAZOLE
     Dates: start: 20150708
  2. CETRABEN [Concomitant]
     Active Substance: PARAFFIN
     Indication: DRY SKIN
     Dosage: APPLY AS OFTEN AS NEEDED TO DRY OR ITCHY SKIN
     Dates: start: 20160428, end: 20160429
  3. AMLODIPINE [Concomitant]
     Active Substance: AMLODIPINE BESYLATE
     Dates: start: 20160107
  4. SULFASALAZINE. [Concomitant]
     Active Substance: SULFASALAZINE
     Dates: start: 20150521
  5. FOLIC ACID. [Concomitant]
     Active Substance: FOLIC ACID
     Dates: start: 20150521
  6. METHOTREXATE [Interacting]
     Active Substance: METHOTREXATE
     Indication: PRODUCT USED FOR UNKNOWN INDICATION
     Route: 065
     Dates: start: 20150521
  7. MOMETASONE [Concomitant]
     Active Substance: MOMETASONE
     Dates: start: 20160517
  8. ZAPAIN [Concomitant]
     Active Substance: ACETAMINOPHEN\CODEINE PHOSPHATE
     Dosage: 2.0DF EVERY 4 - 6 HOURS
     Dates: start: 20160428, end: 20160429
  9. CANDESARTAN [Suspect]
     Active Substance: CANDESARTAN
     Indication: PRODUCT USED FOR UNKNOWN INDICATION
     Dosage: 4.0MG UNKNOWN
     Route: 048
     Dates: start: 20160307
  10. MELOXICAM. [Concomitant]
     Active Substance: MELOXICAM
     Dates: start: 20150521
  11. PREDNISOLONE. [Concomitant]
     Active Substance: PREDNISOLONE
     Dosage: THREE DAILY TWO WEEKS, THEN REDUCE BY 2.5 MG PER FORTNIGHT
     Dates: start: 20160608, end: 20160609

REACTIONS (3)
  - Hepatotoxicity [Recovered/Resolved]
  - Alanine aminotransferase increased [Unknown]
  - Drug interaction [Unknown]

NARRATIVE: CASE EVENT DATE: 20160331
